FAERS Safety Report 25627211 (Version 1)
Quarter: 2025Q3

REPORT INFORMATION
  Report Type: Spontaneous
  Country: US (occurrence: US)
  Receive Date: 20250731
  Receipt Date: 20250731
  Transmission Date: 20251020
  Serious: No
  Sender: ABBVIE
  Company Number: US-ABBVIE-6388039

PATIENT
  Age: 36 Year
  Sex: Male

DRUGS (3)
  1. VRAYLAR [Suspect]
     Active Substance: CARIPRAZINE
     Indication: Bipolar disorder
     Dosage: FIRST ADMIN DATE- 2025
     Route: 048
  2. VRAYLAR [Suspect]
     Active Substance: CARIPRAZINE
     Indication: Bipolar disorder
     Dosage: LAST ADMIN DATE- 2025
     Route: 048
     Dates: start: 20250214
  3. VRAYLAR [Suspect]
     Active Substance: CARIPRAZINE
     Indication: Bipolar disorder
     Dosage: LAST ADMIN DATE- 2025
     Route: 048
     Dates: start: 20250314

REACTIONS (5)
  - Brain fog [Recovering/Resolving]
  - Restlessness [Recovering/Resolving]
  - Somnolence [Recovering/Resolving]
  - Diarrhoea [Recovering/Resolving]
  - Bradykinesia [Recovering/Resolving]

NARRATIVE: CASE EVENT DATE: 20250520
